FAERS Safety Report 8330040-1 (Version None)
Quarter: 2012Q2

REPORT INFORMATION
  Report Type: 
  Country: None (occurrence: None)
  Receive Date: 20120502
  Receipt Date: 20120425
  Transmission Date: 20120825
  Serious: No
  Sender: FDA-Public Use
  Company Number: US-PFIZER INC-2012103891

PATIENT
  Sex: Female

DRUGS (2)
  1. LIPITOR [Suspect]
     Dosage: UNK (AT NIGHT)
  2. LIPITOR [Suspect]
     Dosage: UNK (DURING THE DAY)

REACTIONS (1)
  - RESTLESS LEGS SYNDROME [None]
